FAERS Safety Report 4434175-5 (Version None)
Quarter: 2004Q3

REPORT INFORMATION
  Report Type: 
  Country: None (occurrence: None)
  Receive Date: 20040825
  Receipt Date: 20040810
  Transmission Date: 20050211
  Serious: Yes (Hospitalization)
  Sender: FDA-Public Use
  Company Number: 04P-083-0269996-00

PATIENT
  Age: 60 Year
  Sex: Female

DRUGS (5)
  1. WARFARIN SODIUM [Suspect]
     Indication: ATRIAL FIBRILLATION
     Dosage: SEE IMAGE
  2. WARFARIN SODIUM [Suspect]
     Indication: ATRIAL FIBRILLATION
     Dosage: SEE IMAGE
  3. FLUOROURACIL [Suspect]
     Indication: BREAST CANCER
     Dosage: 600 MG/M2, INTRAVENOUS BOLUS
     Route: 040
  4. CYCLOPHOSPHAMIDE [Concomitant]
  5. METHOTREXATE [Concomitant]

REACTIONS (4)
  - DRUG INTERACTION [None]
  - INTERNATIONAL NORMALISED RATIO INCREASED [None]
  - SUBDURAL HAEMATOMA [None]
  - VOMITING [None]
